FAERS Safety Report 8740410 (Version 3)
Quarter: 2013Q2

REPORT INFORMATION
  Report Type: Spontaneous
  Country: US (occurrence: US)
  Receive Date: 20120823
  Receipt Date: 20130520
  Transmission Date: 20140414
  Serious: No
  Sender: FDA-Public Use
  Company Number: US-009507513-1208USA005395

PATIENT
  Age: 15 Year
  Sex: Male

DRUGS (8)
  1. SINGULAIR [Suspect]
     Indication: ASTHMA
     Dosage: 5 MG, QD
     Route: 048
  2. SINGULAIR [Suspect]
     Indication: HYPERSENSITIVITY
  3. SINGULAIR [Suspect]
     Indication: ASTHMA
     Dosage: 10 MG, QD
     Route: 048
     Dates: start: 201102
  4. SINGULAIR [Suspect]
     Indication: HYPERSENSITIVITY
  5. FLONASE [Concomitant]
  6. ZYRTEC [Concomitant]
  7. PROAIR (ALBUTEROL SULFATE) [Concomitant]
  8. ALLEGRA [Concomitant]

REACTIONS (2)
  - Rhinorrhoea [Recovering/Resolving]
  - Cough [Recovering/Resolving]
